FAERS Safety Report 4611590-8 (Version None)
Quarter: 2005Q1

REPORT INFORMATION
  Report Type: 
  Country: None (occurrence: None)
  Receive Date: 20050317
  Receipt Date: 20050120
  Transmission Date: 20050727
  Serious: Yes (Hospitalization)
  Sender: FDA-Public Use
  Company Number: JP-GLAXOSMITHKLINE-B0365575A

PATIENT
  Age: 83 Year
  Sex: Female

DRUGS (3)
  1. VALTREX [Suspect]
     Indication: HERPES ZOSTER
     Dosage: 1000MG THREE TIMES PER DAY
     Route: 048
     Dates: start: 20050110, end: 20050112
  2. LOXONIN [Concomitant]
     Indication: HERPES ZOSTER
     Dosage: 3U PER DAY
     Route: 048
     Dates: start: 20050110, end: 20050112
  3. ISALON [Concomitant]
     Indication: HERPES ZOSTER
     Dosage: 3U PER DAY
     Route: 048
     Dates: start: 20050110, end: 20050112

REACTIONS (7)
  - CONFUSIONAL STATE [None]
  - MALAISE [None]
  - OVERDOSE [None]
  - RENAL IMPAIRMENT [None]
  - SENSE OF OPPRESSION [None]
  - TREMOR [None]
  - VOMITING [None]
